FAERS Safety Report 7395763-X (Version None)
Quarter: 2011Q2

REPORT INFORMATION
  Report Type: 
  Country: None (occurrence: None)
  Receive Date: 20110405
  Receipt Date: 20110401
  Transmission Date: 20111010
  Serious: Yes (Hospitalization)
  Sender: FDA-Public Use
  Company Number: ID-ABBOTT-11P-079-0715948-00

PATIENT
  Age: 32 Year
  Sex: Female

DRUGS (1)
  1. ESILGAN [Suspect]
     Indication: SUICIDE ATTEMPT
     Dosage: ONCE
     Route: 048
     Dates: start: 20110227

REACTIONS (3)
  - SUICIDE ATTEMPT [None]
  - DEPRESSED LEVEL OF CONSCIOUSNESS [None]
  - INTENTIONAL OVERDOSE [None]
